FAERS Safety Report 20145127 (Version 4)
Quarter: 2022Q1

REPORT INFORMATION
  Report Type: Spontaneous
  Country: SE (occurrence: SE)
  Receive Date: 20211203
  Receipt Date: 20220128
  Transmission Date: 20220423
  Serious: Yes (Other)
  Sender: FDA-Public Use
  Company Number: SE-SA-SAC20211201000949

PATIENT
  Age: 19 Year
  Sex: Female

DRUGS (1)
  1. INSULIN LISPRO [Suspect]
     Active Substance: INSULIN LISPRO
     Dosage: UNK
     Dates: start: 20180608

REACTIONS (1)
  - Lipodystrophy acquired [Recovering/Resolving]

NARRATIVE: CASE EVENT DATE: 20210429
